FAERS Safety Report 7923513 (Version 2)
Quarter: 2012Q4

REPORT INFORMATION
  Report Type: 
  Country: US (occurrence: US)
  Receive Date: 20110429
  Receipt Date: 20120912
  Transmission Date: 20130627
  Serious: No
  Sender: FDA-Public Use
  Company Number: US-ASTRAZENECA-2010SE36788

PATIENT
  Age: 42 Year
  Sex: Female

DRUGS (5)
  1. NEXIUM [Suspect]
     Route: 048
  2. NEXIUM [Suspect]
     Route: 048
  3. PRILOSEC [Suspect]
     Route: 048
  4. ACIPHEX [Concomitant]
  5. PREVACID [Concomitant]

REACTIONS (8)
  - Asthma [Unknown]
  - Adverse event [Unknown]
  - Weight decreased [Unknown]
  - Nightmare [Unknown]
  - Gastric disorder [Unknown]
  - Vomiting [Unknown]
  - Drug dose omission [Unknown]
  - Drug ineffective [Unknown]
